FAERS Safety Report 13326794 (Version 1)
Quarter: 2017Q1

REPORT INFORMATION
  Report Type: Spontaneous
  Country: US (occurrence: US)
  Receive Date: 20170312
  Receipt Date: 20170312
  Transmission Date: 20170428
  Serious: No
  Sender: FDA-Public Use
  Company Number: US-SHIRE-US201704364

PATIENT
  Age: 72 Year
  Sex: Female

DRUGS (1)
  1. XIIDRA [Suspect]
     Active Substance: LIFITEGRAST
     Indication: DRY EYE
     Dosage: 1 GTT OU, 2X/DAY:BID
     Route: 047
     Dates: start: 20170222

REACTIONS (2)
  - Condition aggravated [Unknown]
  - Eye irritation [Unknown]

NARRATIVE: CASE EVENT DATE: 201702
